FAERS Safety Report 21523551 (Version 1)
Quarter: 2022Q4

REPORT INFORMATION
  Report Type: Spontaneous
  Country: FR (occurrence: FR)
  Receive Date: 20221029
  Receipt Date: 20221029
  Transmission Date: 20230112
  Serious: Yes (Hospitalization, Other)
  Sender: FDA-Public Use
  Company Number: None

PATIENT
  Age: 86 Year
  Sex: Female
  Weight: 80 kg

DRUGS (6)
  1. DUPIXENT [Suspect]
     Active Substance: DUPILUMAB
     Indication: Neurodermatitis
     Dosage: 300 MG, QOW
     Route: 058
     Dates: start: 20220705, end: 20220830
  2. GABAPENTIN [Concomitant]
     Active Substance: GABAPENTIN
     Indication: Pruritus
     Dosage: 200 MG, QD
     Route: 048
     Dates: start: 20211027, end: 20220120
  3. GABAPENTIN [Concomitant]
     Active Substance: GABAPENTIN
     Dosage: 300 MG, QD
     Route: 048
     Dates: start: 20220121, end: 20220519
  4. GABAPENTIN [Concomitant]
     Active Substance: GABAPENTIN
     Dosage: 500 MG, QD
     Route: 048
     Dates: start: 20220520
  5. GABAPENTIN [Concomitant]
     Active Substance: GABAPENTIN
     Dosage: 100 MG, QD
     Route: 048
     Dates: start: 20211020, end: 20211026
  6. CLOBETASOL PROPIONATE [Concomitant]
     Active Substance: CLOBETASOL PROPIONATE
     Indication: Neurodermatitis
     Dosage: 2 DF, Q3D
     Route: 003
     Dates: start: 202102

REACTIONS (2)
  - Cardiac failure [Recovered/Resolved]
  - Oedema peripheral [Recovered/Resolved]

NARRATIVE: CASE EVENT DATE: 20220904
